FAERS Safety Report 9314547 (Version 1)
Quarter: 2013Q2

REPORT INFORMATION
  Report Type: Spontaneous
  Country: DK (occurrence: None)
  Receive Date: 20130524
  Receipt Date: 20130524
  Transmission Date: 20140414
  Serious: Yes (Hospitalization, Other)
  Sender: FDA-Public Use
  Company Number: A-13-120

PATIENT
  Age: 35 Year
  Sex: Female

DRUGS (4)
  1. SALBUTAMOL [Suspect]
     Indication: ASTHMA
     Dosage: SIX TIME DAILY
  2. IPRATROPIUM [Concomitant]
  3. METHYLPREDNISOLONE [Concomitant]
  4. PREDNISOLONE [Concomitant]

REACTIONS (3)
  - Lactic acidosis [None]
  - Tachypnoea [None]
  - Tachycardia [None]
